FAERS Safety Report 13854834 (Version 1)
Quarter: 2017Q3

REPORT INFORMATION
  Report Type: Spontaneous
  Country: US (occurrence: US)
  Receive Date: 20170810
  Receipt Date: 20170810
  Transmission Date: 20171127
  Serious: No
  Sender: FDA-Public Use
  Company Number: US-009507513-1708USA002094

PATIENT
  Age: 19 Year
  Sex: Female

DRUGS (2)
  1. M-M-R II [Suspect]
     Active Substance: MEASLES VIRUS STRAIN ENDERS^ ATTENUATED EDMONSTON LIVE ANTIGEN\MUMPS VIRUS STRAIN B LEVEL JERYL LYNN LIVE ANTIGEN\RUBELLA VIRUS STRAIN WISTAR RA 27/3 LIVE ANTIGEN
     Indication: PROPHYLAXIS
     Route: 030
     Dates: start: 20170724, end: 20170724
  2. STERILE DILUENT [Suspect]
     Active Substance: WATER
     Dosage: UNK

REACTIONS (2)
  - Rubella antibody negative [Unknown]
  - Mumps antibody test negative [Unknown]

NARRATIVE: CASE EVENT DATE: 20170731
